FAERS Safety Report 20566614 (Version 3)
Quarter: 2024Q1

REPORT INFORMATION
  Report Type: Spontaneous
  Country: US (occurrence: US)
  Receive Date: 20220308
  Receipt Date: 20240110
  Transmission Date: 20240410
  Serious: Yes (Disabling)
  Sender: FDA-Public Use
  Company Number: US-ORGANON-O2203USA000582

PATIENT
  Sex: Female

DRUGS (2)
  1. SINGULAIR [Suspect]
     Active Substance: MONTELUKAST SODIUM
     Indication: Asthma
     Dosage: UNK
     Route: 048
     Dates: start: 2006, end: 2013
  2. SINGULAIR [Suspect]
     Active Substance: MONTELUKAST SODIUM
     Indication: Hypersensitivity

REACTIONS (15)
  - Neuropsychological symptoms [Not Recovered/Not Resolved]
  - Tic [Not Recovered/Not Resolved]
  - Depression [Not Recovered/Not Resolved]
  - Hostility [Not Recovered/Not Resolved]
  - Aggression [Not Recovered/Not Resolved]
  - Apathy [Not Recovered/Not Resolved]
  - Anxiety [Not Recovered/Not Resolved]
  - Muscle spasms [Not Recovered/Not Resolved]
  - Insomnia [Recovering/Resolving]
  - Anxiety [Recovering/Resolving]
  - Stress [Unknown]
  - Panic disorder [Unknown]
  - Oropharyngeal pain [Unknown]
  - Malaise [Unknown]
  - Fatigue [Unknown]
